FAERS Safety Report 18741393 (Version 1)
Quarter: 2021Q1

REPORT INFORMATION
  Report Type: Spontaneous
  Country: US (occurrence: US)
  Receive Date: 20210114
  Receipt Date: 20210114
  Transmission Date: 20210419
  Serious: No
  Sender: FDA-Public Use
  Company Number: US-ABBVIE-20K-163-3370668-00

PATIENT
  Age: 61 Year
  Sex: Female
  Weight: 85.81 kg

DRUGS (6)
  1. MIDODRINE [Concomitant]
     Active Substance: MIDODRINE
     Indication: HYPOTENSION
  2. ROPINIROLE. [Concomitant]
     Active Substance: ROPINIROLE
     Indication: RESTLESS LEGS SYNDROME
  3. DONEPEZIL. [Concomitant]
     Active Substance: DONEPEZIL
     Indication: MEMORY IMPAIRMENT
  4. FLUDROCORTISONE [Concomitant]
     Active Substance: FLUDROCORTISONE
     Indication: HYPOTENSION
  5. DUOPA [Suspect]
     Active Substance: CARBIDOPA\LEVODOPA
     Indication: PARKINSON^S DISEASE
     Route: 050
     Dates: start: 201909
  6. ZALEPLON. [Concomitant]
     Active Substance: ZALEPLON
     Indication: SLEEP DISORDER

REACTIONS (5)
  - Burning mouth syndrome [Not Recovered/Not Resolved]
  - On and off phenomenon [Not Recovered/Not Resolved]
  - Device alarm issue [Recovered/Resolved]
  - Dysgeusia [Not Recovered/Not Resolved]
  - Depressed mood [Not Recovered/Not Resolved]

NARRATIVE: CASE EVENT DATE: 2020
